FAERS Safety Report 10177832 (Version 1)
Quarter: 2014Q2

REPORT INFORMATION
  Report Type: Spontaneous
  Country: US (occurrence: US)
  Receive Date: 20140516
  Receipt Date: 20140516
  Transmission Date: 20141212
  Serious: No
  Sender: FDA-Public Use
  Company Number: US-SA-2013SA121242

PATIENT
  Age: 70 Year
  Sex: Male

DRUGS (2)
  1. SOLOSTAR [Suspect]
     Dosage: PRODUCT START 2 MONTHS AGO
  2. APIDRA SOLOSTAR [Suspect]
     Dosage: DOSE-SLIDING SCALE AVG 20?PRODUCT START 2MONTHS AGO
     Route: 058

REACTIONS (2)
  - Injury associated with device [Unknown]
  - Blood glucose increased [Unknown]
